FAERS Safety Report 8381366-7 (Version None)
Quarter: 2012Q2

REPORT INFORMATION
  Report Type: 
  Country: None (occurrence: None)
  Receive Date: 20120523
  Receipt Date: 20120510
  Transmission Date: 20120825
  Serious: Yes (Hospitalization)
  Sender: FDA-Public Use
  Company Number: DE-ELI_LILLY_AND_COMPANY-DE201205003924

PATIENT
  Sex: Female

DRUGS (9)
  1. MOXONIDIN [Concomitant]
  2. AMITRIPTYLINE HCL [Concomitant]
  3. CYMBALTA [Suspect]
     Indication: DEPRESSION
     Dosage: 60 MG, QD
     Route: 048
     Dates: start: 20111125, end: 20111127
  4. LEVOTHYROXINE SODIUM [Concomitant]
  5. METOPROLOL [Concomitant]
  6. RAMIPRIL [Concomitant]
  7. AMLODIPINE BESYLATE [Concomitant]
  8. TILIDIN [Concomitant]
  9. SOLIAN [Concomitant]

REACTIONS (1)
  - HEPATIC ENZYME INCREASED [None]
